FAERS Safety Report 5963820-8 (Version None)
Quarter: 2008Q4

REPORT INFORMATION
  Report Type: 
  Country: None (occurrence: None)
  Receive Date: 20081124
  Receipt Date: 20081119
  Transmission Date: 20090506
  Serious: Yes (Hospitalization, Other)
  Sender: FDA-Public Use
  Company Number: DE-WYE-G02387908

PATIENT
  Sex: Female

DRUGS (3)
  1. TREVILOR RETARD [Suspect]
     Indication: DEPRESSION
     Route: 048
     Dates: start: 20060101, end: 20080927
  2. TREVILOR RETARD [Suspect]
     Indication: BIPOLAR DISORDER
     Dosage: UNKNOWN DAILY DOSE
     Route: 048
     Dates: start: 20020101
  3. LITHIUM CARBONATE [Concomitant]
     Indication: DEPRESSION
     Dosage: 400 MG PER DAY
     Route: 048
     Dates: start: 20080201

REACTIONS (2)
  - EOSINOPHILIA [None]
  - HEPATITIS CHOLESTATIC [None]
